FAERS Safety Report 14099619 (Version 1)
Quarter: 2017Q4

REPORT INFORMATION
  Report Type: Spontaneous
  Country: GB (occurrence: GB)
  Receive Date: 20171017
  Receipt Date: 20171017
  Transmission Date: 20180321
  Serious: Yes (Hospitalization)
  Sender: FDA-Public Use
  Company Number: GB-ELI_LILLY_AND_COMPANY-GB201710003200

PATIENT
  Age: 16 Year
  Sex: Female

DRUGS (5)
  1. RAMIPRIL. [Suspect]
     Active Substance: RAMIPRIL
     Indication: INTENTIONAL OVERDOSE
     Dosage: 140 MG, SINGLE
     Route: 065
     Dates: start: 20170915
  2. FLUOXETINE HYDROCHLORIDE 20MG [Suspect]
     Active Substance: FLUOXETINE HYDROCHLORIDE
     Indication: DEPRESSION
     Dosage: 20 MG, UNKNOWN
     Route: 048
  3. METRONIDAZOLE. [Suspect]
     Active Substance: METRONIDAZOLE
     Indication: INTENTIONAL OVERDOSE
     Dosage: 1400 MG, SINGLE
     Route: 065
     Dates: start: 20170915
  4. COCODAMOL [Suspect]
     Active Substance: ACETAMINOPHEN\CODEINE PHOSPHATE
     Indication: INTENTIONAL OVERDOSE
     Dosage: UNK, 10 X 8/500MG, MORE THAN 4 HOURS SINCE INGESTION
     Route: 065
     Dates: start: 20170915
  5. NAPROXEN. [Suspect]
     Active Substance: NAPROXEN
     Indication: INTENTIONAL OVERDOSE
     Dosage: 14000 MG, SINGLE
     Route: 065
     Dates: start: 20170915

REACTIONS (7)
  - Suicidal behaviour [Recovered/Resolved with Sequelae]
  - Intentional overdose [Unknown]
  - Suicidal ideation [Unknown]
  - Suicide attempt [Unknown]
  - Condition aggravated [Unknown]
  - Depressed mood [Unknown]
  - Intentional self-injury [Unknown]

NARRATIVE: CASE EVENT DATE: 20170915
